FAERS Safety Report 17432723 (Version 3)
Quarter: 2020Q3

REPORT INFORMATION
  Report Type: Report from Study
  Country: JP (occurrence: JP)
  Receive Date: 20200218
  Receipt Date: 20200929
  Transmission Date: 20201102
  Serious: Yes (Hospitalization)
  Sender: FDA-Public Use
  Company Number: JP-AMGEN-JPNCT2020026892

PATIENT
  Age: 72 Year
  Sex: Female

DRUGS (38)
  1. OMEPRAZOLE. [Suspect]
     Active Substance: OMEPRAZOLE
     Indication: PRODUCT USED FOR UNKNOWN INDICATION
     Dosage: 40 MG
     Route: 065
     Dates: start: 20160325, end: 20160328
  2. FUROSEMIDE. [Concomitant]
     Active Substance: FUROSEMIDE
     Indication: HYPERTENSION
     Dosage: 20 MG
     Route: 048
  3. FERROUS CITRATE NA [Concomitant]
     Active Substance: SODIUM FERROUS CITRATE
     Indication: IRON DEFICIENCY ANAEMIA
     Dosage: 50 MG
     Route: 048
  4. ANTEBATE [Concomitant]
     Active Substance: BETAMETHASONE DIPROPIONATE
     Indication: PRODUCT USED FOR UNKNOWN INDICATION
     Dosage: UNK
     Route: 061
     Dates: start: 20160318, end: 20160322
  5. ETODOLAC. [Concomitant]
     Active Substance: ETODOLAC
     Indication: PRODUCT USED FOR UNKNOWN INDICATION
     Dosage: 400 MG
     Route: 048
     Dates: start: 20160528, end: 20160610
  6. CEFOTIAM [Concomitant]
     Active Substance: CEFOTIAM
     Indication: PRODUCT USED FOR UNKNOWN INDICATION
     Dosage: 2 GRAM
     Route: 065
     Dates: start: 20160526, end: 20160527
  7. SANDOSTATIN [Concomitant]
     Active Substance: OCTREOTIDE ACETATE
     Indication: PRODUCT USED FOR UNKNOWN INDICATION
     Dosage: 200 UG
     Route: 065
     Dates: start: 20160707, end: 20160712
  8. CINACALCET HCL [Suspect]
     Active Substance: CINACALCET HYDROCHLORIDE
     Indication: HYPERCALCAEMIA
     Dosage: 12.5 MILLIGRAM
     Route: 048
  9. COAHIBITOR [Suspect]
     Active Substance: NAFAMOSTAT MESYLATE
     Dosage: 20 MG
     Route: 065
     Dates: start: 20170119, end: 20170119
  10. LANSOPRAZOLE. [Suspect]
     Active Substance: LANSOPRAZOLE
     Dosage: 30 MG
     Route: 048
     Dates: start: 20160329
  11. DIOVAN [Concomitant]
     Active Substance: VALSARTAN
     Indication: HYPERTENSION
     Dosage: 40 MG
     Route: 048
     Dates: end: 20160310
  12. ADONA [Concomitant]
     Indication: PRODUCT USED FOR UNKNOWN INDICATION
     Dosage: 100 MG
     Route: 065
     Dates: start: 20160420, end: 20160420
  13. TRANSAMIN [Concomitant]
     Active Substance: TRANEXAMIC ACID
     Indication: PRODUCT USED FOR UNKNOWN INDICATION
     Dosage: 1000 MG
     Route: 065
     Dates: start: 20160420, end: 20160420
  14. MEROPENEM. [Concomitant]
     Active Substance: MEROPENEM
     Indication: PRODUCT USED FOR UNKNOWN INDICATION
     Dosage: 0.5 G
     Route: 065
     Dates: start: 20160325, end: 20160328
  15. COAHIBITOR [Suspect]
     Active Substance: NAFAMOSTAT MESYLATE
     Dosage: 40 MG
     Route: 065
     Dates: start: 20160322, end: 20160326
  16. AMLODIPINE [Concomitant]
     Active Substance: AMLODIPINE BESYLATE
     Indication: HYPERTENSION
     Dosage: 2.5 MILLIGRAM
     Route: 048
  17. ANTEBATE [Concomitant]
     Active Substance: BETAMETHASONE DIPROPIONATE
     Dosage: UNK
     Route: 061
     Dates: start: 20160714, end: 20160716
  18. SENNOSIDE [Concomitant]
     Active Substance: SENNOSIDES
     Indication: HYPERPARATHYROIDISM PRIMARY
     Dosage: 24 MILLIGRAM, AS NECESSARY
     Route: 048
     Dates: start: 20160524
  19. FAMOTIDINE. [Concomitant]
     Active Substance: FAMOTIDINE
     Indication: GASTRIC ULCER
     Dosage: 20 MG
     Route: 065
     Dates: start: 20160526, end: 20160527
  20. COAHIBITOR [Suspect]
     Active Substance: NAFAMOSTAT MESYLATE
     Dosage: 40 MG
     Route: 065
     Dates: start: 20160706, end: 20160712
  21. GLYCERIN. [Concomitant]
     Active Substance: GLYCERIN
     Indication: HYPERPARATHYROIDISM PRIMARY
     Dosage: 120 ML, PRN
     Route: 054
     Dates: start: 20160526
  22. BISOLVON [Concomitant]
     Active Substance: BROMHEXINE HYDROCHLORIDE
     Dosage: 8 MG
     Route: 065
     Dates: start: 20160527, end: 20160527
  23. COAHIBITOR [Suspect]
     Active Substance: NAFAMOSTAT MESYLATE
     Indication: PRODUCT USED FOR UNKNOWN INDICATION
     Dosage: 40 MG
     Route: 065
     Dates: start: 20160311, end: 20160318
  24. COAHIBITOR [Suspect]
     Active Substance: NAFAMOSTAT MESYLATE
     Dosage: 20 MG
     Route: 065
     Dates: start: 20160705, end: 20160705
  25. COAHIBITOR [Suspect]
     Active Substance: NAFAMOSTAT MESYLATE
     Dosage: 20 MG
     Route: 065
     Dates: start: 20161018, end: 20161018
  26. DICLOFENAC NA [Concomitant]
     Active Substance: DICLOFENAC SODIUM
     Indication: PRODUCT USED FOR UNKNOWN INDICATION
     Dosage: 25 MG, PRN
     Route: 054
     Dates: start: 20160527, end: 20160528
  27. PRIMPERAN [Concomitant]
     Active Substance: METOCLOPRAMIDE HYDROCHLORIDE
     Indication: PRODUCT USED FOR UNKNOWN INDICATION
     Dosage: 10 MG, PRN
     Route: 065
     Dates: start: 20160323, end: 20160324
  28. TRANSAMIN [Concomitant]
     Active Substance: TRANEXAMIC ACID
     Dosage: 1000 MG
     Route: 065
     Dates: start: 20160526, end: 20160528
  29. CINACALCET HCL [Suspect]
     Active Substance: CINACALCET HYDROCHLORIDE
     Dosage: UNK (INCREASED DOSE)
     Route: 048
  30. CINACALCET HCL [Suspect]
     Active Substance: CINACALCET HYDROCHLORIDE
     Dosage: 25 MILLIGRAM, BID
     Route: 048
     Dates: start: 20160226
  31. LANSOPRAZOLE. [Suspect]
     Active Substance: LANSOPRAZOLE
     Indication: GASTRIC ULCER
     Dosage: 15 MG
     Route: 048
     Dates: end: 20160328
  32. SOSEGON [Concomitant]
     Active Substance: PENTAZOCINE
     Indication: PRODUCT USED FOR UNKNOWN INDICATION
     Dosage: 15 MILLIGRAM
     Route: 065
     Dates: start: 20160325, end: 20160325
  33. ADONA [Concomitant]
     Dosage: 100 MG
     Route: 065
     Dates: start: 20160526, end: 20160528
  34. OMEPRAZOLE. [Suspect]
     Active Substance: OMEPRAZOLE
     Dosage: 40 MG
     Route: 065
     Dates: start: 20160707, end: 20160712
  35. VITANEURIN [Concomitant]
     Indication: PRODUCT USED FOR UNKNOWN INDICATION
     Dosage: 75 MG
     Route: 048
     Dates: end: 20160506
  36. LECICARBON [Concomitant]
     Active Substance: SODIUM BICARBONATE\SODIUM PHOSPHATE, MONOBASIC
     Indication: HYPERPARATHYROIDISM PRIMARY
     Dosage: 1 DF, PRN
     Route: 054
     Dates: start: 20160329
  37. PRIMPERAN [Concomitant]
     Active Substance: METOCLOPRAMIDE HYDROCHLORIDE
     Dosage: 10 MG, PRN
     Route: 065
     Dates: start: 20160528, end: 20160528
  38. BISOLVON [Concomitant]
     Active Substance: BROMHEXINE HYDROCHLORIDE
     Indication: PRODUCT USED FOR UNKNOWN INDICATION
     Dosage: 4 MG
     Route: 065
     Dates: start: 20160526, end: 20160526

REACTIONS (16)
  - Duodenal ulcer [Recovering/Resolving]
  - Procedural pain [Recovered/Resolved]
  - Amylase increased [Recovered/Resolved]
  - Anaemia [Recovered/Resolved]
  - Vomiting [Recovering/Resolving]
  - Supraventricular extrasystoles [Recovered/Resolved]
  - Procedural pain [Recovering/Resolving]
  - Vomiting [Recovered/Resolved]
  - Vomiting [Recovering/Resolving]
  - C-reactive protein increased [Recovered/Resolved]
  - Diarrhoea [Recovering/Resolving]
  - Dermatitis [Recovered/Resolved]
  - Pancreatitis acute [Recovering/Resolving]
  - Pancreatitis [Recovering/Resolving]
  - Duodenal ulcer [Recovering/Resolving]
  - Dermatitis [Recovered/Resolved]

NARRATIVE: CASE EVENT DATE: 20160311
